FAERS Safety Report 4624978-6 (Version None)
Quarter: 2005Q2

REPORT INFORMATION
  Report Type: 
  Country: None (occurrence: None)
  Receive Date: 20050401
  Receipt Date: 20040720
  Transmission Date: 20051028
  Serious: Yes (Hospitalization)
  Sender: FDA-Public Use
  Company Number: US-SOLVAY-00204002426

PATIENT
  Age: 11652 Day
  Sex: Female
  Weight: 70.307 kg

DRUGS (4)
  1. ASACOL [Concomitant]
     Indication: CROHN'S DISEASE
     Dosage: DAILY DOSE: 3600 MILLIGRAM(S)
     Route: 048
     Dates: start: 20040401, end: 20050201
  2. ROWASA [Suspect]
     Indication: CROHN'S DISEASE
     Dosage: DAILY DOSE: 4 GRAM(S)
     Route: 054
     Dates: start: 20040601, end: 20040801
  3. ROWASA [Suspect]
     Dosage: DAILY DOSE:  UNKNOWN
     Route: 054
     Dates: start: 20050101
  4. PREDNISONE [Concomitant]
     Indication: CROHN'S DISEASE
     Dosage: DAILY DOSE: 60 MILLIGRAM(S)
     Route: 048
     Dates: start: 20040401, end: 20040601

REACTIONS (1)
  - DEEP VEIN THROMBOSIS [None]
